FAERS Safety Report 5922350-X (Version None)
Quarter: 2008Q4

REPORT INFORMATION
  Report Type: 
  Country: None (occurrence: None)
  Receive Date: 20081017
  Receipt Date: 20081008
  Transmission Date: 20090506
  Serious: Yes (Hospitalization, Other)
  Sender: FDA-Public Use
  Company Number: FR-GILEAD-2008-0017876

PATIENT
  Sex: Male

DRUGS (5)
  1. TRUVADA [Suspect]
     Indication: HIV INFECTION
     Route: 048
     Dates: start: 20080527, end: 20080708
  2. TRUVADA [Suspect]
     Dates: start: 20080721
  3. KALETRA [Suspect]
     Indication: HIV INFECTION
     Dates: start: 20080527, end: 20080708
  4. BACTRIM [Suspect]
     Dates: start: 20080527, end: 20080728
  5. VITAMIN K TAB [Concomitant]

REACTIONS (11)
  - ALPHA 1 FOETOPROTEIN INCREASED [None]
  - CYTOLYTIC HEPATITIS [None]
  - EOSINOPHILIA [None]
  - ERYTHROPOIESIS ABNORMAL [None]
  - FATIGUE [None]
  - FOLATE DEFICIENCY [None]
  - HEPATIC LESION [None]
  - JAUNDICE [None]
  - NEUTROPENIA [None]
  - PYREXIA [None]
  - THROMBOCYTOPENIA [None]
